FAERS Safety Report 7431765-2 (Version None)
Quarter: 2011Q1

REPORT INFORMATION
  Report Type: 
  Country: None (occurrence: None)
  Receive Date: 20110302
  Receipt Date: 20101026
  Transmission Date: 20110831
  Serious: No
  Sender: FDA-Public Use
  Company Number: 021184

PATIENT
  Sex: Male
  Weight: 82 kg

DRUGS (5)
  1. ASACOL [Concomitant]
  2. LISINOPRIL [Concomitant]
  3. CIMZIA [Suspect]
     Indication: CROHN'S DISEASE
     Dosage: 400 MG 1X/MONTH SUBCUTANEOUS
     Route: 058
     Dates: start: 20100907
  4. AVODART [Concomitant]
  5. METOPROLOL SUCCINATE [Concomitant]

REACTIONS (2)
  - CHEST PAIN [None]
  - ABDOMINAL DISTENSION [None]
